FAERS Safety Report 7529237-X (Version None)
Quarter: 2011Q2

REPORT INFORMATION
  Report Type: 
  Country: None (occurrence: None)
  Receive Date: 20110607
  Receipt Date: 20050503
  Transmission Date: 20111010
  Serious: Yes (Death)
  Sender: FDA-Public Use
  Company Number: PHHO2005ES07130

PATIENT
  Sex: Female

DRUGS (4)
  1. EXELON [Suspect]
     Dosage: 12 MG, QD
     Dates: start: 20020610, end: 20021029
  2. SINTROM [Concomitant]
  3. FUROSEMIDE [Concomitant]
  4. DIGOXIN [Concomitant]

REACTIONS (1)
  - DEATH [None]
